FAERS Safety Report 11588239 (Version 1)
Quarter: 2015Q3

REPORT INFORMATION
  Report Type: Spontaneous
  Country: US (occurrence: None)
  Receive Date: 20150929
  Receipt Date: 20150929
  Transmission Date: 20151125
  Serious: Yes (Hospitalization)
  Sender: FDA-Public Use
  Company Number: 15-05-002

PATIENT
  Age: 54 Year
  Sex: Female
  Weight: 63.96 kg

DRUGS (2)
  1. LEFLUNOMIDE, 20 MG [Suspect]
     Active Substance: LEFLUNOMIDE
     Indication: RHEUMATOID ARTHRITIS
     Route: 048
  2. CYMBALTA [Concomitant]
     Active Substance: DULOXETINE HYDROCHLORIDE

REACTIONS (5)
  - Fall [None]
  - Movement disorder [None]
  - Cold sweat [None]
  - Paraesthesia [None]
  - Vomiting [None]

NARRATIVE: CASE EVENT DATE: 20150426
